FAERS Safety Report 6885556-1 (Version None)
Quarter: 2010Q3

REPORT INFORMATION
  Report Type: 
  Country: None (occurrence: None)
  Receive Date: 20100729
  Receipt Date: 20080326
  Transmission Date: 20110219
  Serious: No
  Sender: FDA-Public Use
  Company Number: US-PFIZER INC-2008027763

PATIENT
  Sex: Female
  Weight: 90.909 kg

DRUGS (5)
  1. CELEBREX [Suspect]
     Indication: ARTHRITIS
     Dates: start: 20080301
  2. GLUCOSAMINE [Concomitant]
  3. VITAMIN B [Concomitant]
  4. METOPROLOL TARTRATE [Concomitant]
  5. ACETAMINOPHEN [Concomitant]

REACTIONS (2)
  - ABDOMINAL DISCOMFORT [None]
  - RASH [None]
